FAERS Safety Report 8471716-5 (Version None)
Quarter: 2012Q2

REPORT INFORMATION
  Report Type: 
  Country: None (occurrence: None)
  Receive Date: 20120627
  Receipt Date: 20120620
  Transmission Date: 20120825
  Serious: Yes (Other)
  Sender: FDA-Public Use
  Company Number: ES-GLAXOSMITHKLINE-B0809171A

PATIENT
  Age: 66 Year
  Sex: Male

DRUGS (2)
  1. VALACICLOVIR [Suspect]
     Indication: HERPES ZOSTER
     Dosage: 500MG TWICE PER DAY
     Route: 048
  2. ACYCLOVIR [Suspect]
     Indication: HERPES ZOSTER
     Route: 042

REACTIONS (3)
  - NEUROTOXICITY [None]
  - DYSARTHRIA [None]
  - DEPRESSED LEVEL OF CONSCIOUSNESS [None]
